FAERS Safety Report 10193517 (Version 1)
Quarter: 2014Q2

REPORT INFORMATION
  Report Type: Spontaneous
  Country: US (occurrence: US)
  Receive Date: 20140524
  Receipt Date: 20140524
  Transmission Date: 20141212
  Serious: No
  Sender: FDA-Public Use
  Company Number: US-SA-2013SA128888

PATIENT
  Age: 85 Year
  Sex: Female

DRUGS (4)
  1. LANTUS SOLOSTAR [Suspect]
     Indication: TYPE 2 DIABETES MELLITUS
     Dosage: DOSE:22 UNIT(S)
     Route: 051
  2. LORTAB [Suspect]
     Indication: BACK PAIN
     Route: 065
  3. SOLOSTAR [Concomitant]
     Indication: TYPE 2 DIABETES MELLITUS
  4. OTHER ANTIHYPERTENSIVES [Concomitant]

REACTIONS (5)
  - Injection site mass [Not Recovered/Not Resolved]
  - Injection site scar [Not Recovered/Not Resolved]
  - Rash generalised [Recovered/Resolved]
  - Pruritus [Recovering/Resolving]
  - Injection site pain [Not Recovered/Not Resolved]
